FAERS Safety Report 4663243-8 (Version None)
Quarter: 2005Q2

REPORT INFORMATION
  Report Type: 
  Country: None (occurrence: None)
  Receive Date: 20050511
  Receipt Date: 20530124
  Transmission Date: 20051028
  Serious: Yes (Other)
  Sender: FDA-Public Use
  Company Number: 388953

PATIENT
  Age: 55 Year
  Sex: Male
  Weight: 85.3 kg

DRUGS (6)
  1. PEGASYS [Suspect]
     Indication: HEPATITIS C
     Dosage: 180 MG 1 PER WEEK SUBCUTANEOUS
     Route: 058
     Dates: start: 20040702, end: 20040823
  2. COPEGUS [Concomitant]
  3. WELLBUTRIN [Concomitant]
  4. RITALIN [Concomitant]
  5. ZYPREXA [Concomitant]
  6. PREVACID [Concomitant]

REACTIONS (6)
  - ANAEMIA [None]
  - BLINDNESS [None]
  - LEUKOPENIA [None]
  - RETINAL EXUDATES [None]
  - RETINAL HAEMORRHAGE [None]
  - VISION BLURRED [None]
